FAERS Safety Report 6903324-9 (Version None)
Quarter: 2010Q3

REPORT INFORMATION
  Report Type: 
  Country: None (occurrence: None)
  Receive Date: 20100803
  Receipt Date: 20080913
  Transmission Date: 20110219
  Serious: Yes (Other)
  Sender: FDA-Public Use
  Company Number: US-PFIZER INC-2008077700

PATIENT
  Sex: Female
  Weight: 86.2 kg

DRUGS (8)
  1. LYRICA [Suspect]
     Indication: FIBROMYALGIA
     Route: 048
     Dates: start: 20080301, end: 20080906
  2. TRAZODONE [Concomitant]
  3. LORAZEPAM [Concomitant]
  4. ULTRACET [Concomitant]
  5. ADVAIR DISKUS 100/50 [Concomitant]
  6. FEXOFENADINE [Concomitant]
  7. SYNTHROID [Concomitant]
  8. EFFEXOR XR [Concomitant]

REACTIONS (8)
  - BLOOD CHOLESTEROL INCREASED [None]
  - BLOOD FOLATE DECREASED [None]
  - BLOOD TEST ABNORMAL [None]
  - BLOOD TRIGLYCERIDES INCREASED [None]
  - DISTURBANCE IN ATTENTION [None]
  - LIVER FUNCTION TEST ABNORMAL [None]
  - MANIA [None]
  - VITAMIN D DECREASED [None]
